FAERS Safety Report 16086572 (Version 5)
Quarter: 2020Q2

REPORT INFORMATION
  Report Type: Spontaneous
  Country: US (occurrence: US)
  Receive Date: 20190318
  Receipt Date: 20200424
  Transmission Date: 20200713
  Serious: No
  Sender: FDA-Public Use
  Company Number: US-ACTELION-A-NJ2019-186994

PATIENT
  Sex: Female
  Weight: 72.56 kg

DRUGS (5)
  1. ADEMPAS [Concomitant]
     Active Substance: RIOCIGUAT
  2. TORSEMIDE. [Concomitant]
     Active Substance: TORSEMIDE
  3. UPTRAVI [Suspect]
     Active Substance: SELEXIPAG
     Indication: PULMONARY ARTERIAL HYPERTENSION
     Dosage: 1200 MCG, BID
     Route: 048
  4. UPTRAVI [Suspect]
     Active Substance: SELEXIPAG
     Dosage: 800 MCG, BID
     Route: 048
  5. TRACLEER [Suspect]
     Active Substance: BOSENTAN
     Indication: PULMONARY ARTERIAL HYPERTENSION
     Dosage: 32 MG, BID
     Route: 048

REACTIONS (15)
  - Back pain [Unknown]
  - Dizziness [Recovered/Resolved]
  - Oedema peripheral [Unknown]
  - Skin wrinkling [Unknown]
  - Abdominal discomfort [Unknown]
  - Constipation [Unknown]
  - Weight decreased [Unknown]
  - Feeling abnormal [Unknown]
  - Arthralgia [Unknown]
  - Cold sweat [Unknown]
  - Hernia [Unknown]
  - Product dose omission [Unknown]
  - Urine output increased [Not Recovered/Not Resolved]
  - Thirst [Unknown]
  - Hypotension [Unknown]
